FAERS Safety Report 9363467 (Version 1)
Quarter: 2013Q2

REPORT INFORMATION
  Report Type: Spontaneous
  Country: FR (occurrence: None)
  Receive Date: 20130618
  Receipt Date: 20130618
  Transmission Date: 20140414
  Serious: Yes (Hospitalization)
  Sender: FDA-Public Use
  Company Number: SYM-2013-04631

PATIENT
  Age: 58 Year
  Sex: Male

DRUGS (3)
  1. FLUOROURACIL [Suspect]
     Indication: ADENOCARCINOMA GASTRIC
  2. CYCLOPHOSPHAMIDE (CYCLOPHOSPHAMIDE) (CYCLOPHOSPHAMIDE) [Concomitant]
  3. EPIRUBICIN (EPIRUBICIN) (EPIRUBICIN) [Concomitant]

REACTIONS (3)
  - Mucosal inflammation [None]
  - Neutropenia [None]
  - Overdose [None]
